FAERS Safety Report 7568043-7 (Version None)
Quarter: 2011Q2

REPORT INFORMATION
  Report Type: 
  Country: None (occurrence: None)
  Receive Date: 20110616
  Receipt Date: 20110208
  Transmission Date: 20111010
  Serious: Yes (Other)
  Sender: FDA-Public Use
  Company Number: FK201100163

PATIENT
  Age: 59 Year
  Sex: Male

DRUGS (2)
  1. CISPLATIN [Concomitant]
  2. FLUOROURACIL INJ [Suspect]
     Indication: OESOPHAGEAL CARCINOMA
     Dosage: 800 MG/M2

REACTIONS (6)
  - COGNITIVE DISORDER [None]
  - ABNORMAL BEHAVIOUR [None]
  - LEUKOENCEPHALOPATHY [None]
  - DYSARTHRIA [None]
  - DYSPHAGIA [None]
  - AMMONIA INCREASED [None]
